FAERS Safety Report 8462276-3 (Version None)
Quarter: 2012Q2

REPORT INFORMATION
  Report Type: 
  Country: None (occurrence: None)
  Receive Date: 20120625
  Receipt Date: 20120618
  Transmission Date: 20120825
  Serious: Yes (Hospitalization)
  Sender: FDA-Public Use
  Company Number: US-BAYER-2011-047511

PATIENT
  Age: 41 Year
  Sex: Female
  Weight: 173.24 kg

DRUGS (27)
  1. JANUMET [Concomitant]
     Indication: DIABETES MELLITUS
     Dosage: UNK
     Dates: start: 20070627, end: 20080828
  2. PRAVASTATIN [Concomitant]
     Dosage: 40 MG, UNK
     Dates: start: 20080707, end: 20110303
  3. LANTUS [Concomitant]
     Dosage: UNK
     Dates: start: 20090206, end: 20091011
  4. LASIX [Concomitant]
  5. NORVASC [Concomitant]
  6. VANCOMYCIN [Concomitant]
  7. VICODIN [Concomitant]
  8. FUROSEMIDE [Concomitant]
     Indication: BLOOD PRESSURE INCREASED
     Dosage: UNK
     Dates: start: 20010417, end: 20101216
  9. ASPIRIN [Concomitant]
  10. NAPROXEN [Concomitant]
     Dosage: 500 MG, UNK
     Dates: start: 20070701, end: 20090116
  11. METOPROLOL TARTRATE [Concomitant]
  12. ZETIA [Concomitant]
     Dosage: 10 MG, UNK
     Dates: start: 20090210
  13. LOPRESSOR [Concomitant]
  14. ENALAPRIL MALEATE [Concomitant]
     Indication: BLOOD PRESSURE INCREASED
     Dosage: UNK
     Dates: start: 20010525, end: 20110302
  15. METOPROLOL TARTRATE [Concomitant]
     Indication: HEART RATE ABNORMAL
     Dosage: UNK
     Dates: start: 20080707, end: 20110302
  16. CIPROFLOXACIN [Concomitant]
     Dosage: 500 MG, UNK
     Dates: start: 20080314, end: 20101229
  17. HYDROCODONE BITARTRATE AND ACETAMINOPHEN [Concomitant]
     Dosage: UNK
     Dates: start: 20081211, end: 20101229
  18. YASMIN [Suspect]
     Indication: CONTRACEPTION
     Dosage: UNK
     Dates: start: 20040830, end: 20090305
  19. GLIPIZIDE [Concomitant]
     Indication: DIABETES MELLITUS
     Dosage: UNK
     Dates: start: 20040807, end: 20110302
  20. AMOXICILLIN [Concomitant]
     Dosage: 875 MG, UNK
     Dates: start: 20061227, end: 20110310
  21. BYETTA [Concomitant]
  22. TOPROL-XL [Concomitant]
  23. DROSPIRENONE AND ETHINYL ESTRADIOL [Suspect]
     Indication: CONTRACEPTION
     Dosage: UNK
     Dates: start: 20040830, end: 20090305
  24. SULFAMETHOXAZOLE AND TRIMETHOPRIM [Concomitant]
     Dosage: UNK
     Dates: start: 20080424, end: 20110501
  25. DROSPIRENONE AND ETHINYL ESTRADIOL [Suspect]
     Indication: PREMENSTRUAL SYNDROME
  26. CRESTOR [Concomitant]
  27. YASMIN [Suspect]
     Indication: PREMENSTRUAL SYNDROME

REACTIONS (5)
  - EMOTIONAL DISTRESS [None]
  - PAIN [None]
  - MYOCARDIAL INFARCTION [None]
  - THROMBOPHLEBITIS SUPERFICIAL [None]
  - INJURY [None]
